FAERS Safety Report 16202702 (Version 1)
Quarter: 2020Q3

REPORT INFORMATION
  Report Type: Report from Study
  Country: AU (occurrence: AU)
  Receive Date: 20190416
  Receipt Date: 20190416
  Transmission Date: 20201104
  Serious: Yes (Death, Hospitalization)
  Sender: FDA-Public Use
  Company Number: AU-ROCHE-1887990

PATIENT
  Age: 41 Year
  Sex: Male
  Weight: 92.1 kg

DRUGS (71)
  1. PANADOL (AUSTRALIA) [Concomitant]
     Indication: PAIN
     Route: 048
  2. CAPTOPRIL. [Concomitant]
     Active Substance: CAPTOPRIL
     Indication: CHEST PAIN
     Route: 048
     Dates: start: 20170204, end: 20170204
  3. MIDAZOLAM HYDROCHLORIDE. [Concomitant]
     Active Substance: MIDAZOLAM HYDROCHLORIDE
     Route: 042
     Dates: start: 20170208, end: 20170208
  4. HALOPERIDOL. [Concomitant]
     Active Substance: HALOPERIDOL
     Indication: RESTLESSNESS
     Route: 042
     Dates: start: 20170207, end: 20170207
  5. NORADRENALINE [Concomitant]
     Active Substance: NOREPINEPHRINE
     Route: 042
     Dates: start: 20170207, end: 20170208
  6. OXYCODONE [Concomitant]
     Active Substance: OXYCODONE
     Route: 048
     Dates: start: 20170203, end: 20170203
  7. PRAZOSIN. [Concomitant]
     Active Substance: PRAZOSIN
     Route: 048
     Dates: start: 20170205, end: 20170206
  8. MIDAZOLAM HYDROCHLORIDE. [Concomitant]
     Active Substance: MIDAZOLAM HYDROCHLORIDE
     Route: 042
     Dates: start: 20170204, end: 20170206
  9. KETAMINE [Concomitant]
     Active Substance: KETAMINE
     Indication: PAIN
     Route: 042
     Dates: start: 20170206, end: 20170206
  10. KETAMINE [Concomitant]
     Active Substance: KETAMINE
     Route: 042
     Dates: start: 20170204, end: 20170205
  11. DEXMEDETOMIDINE. [Concomitant]
     Active Substance: DEXMEDETOMIDINE
     Route: 042
     Dates: start: 20170205, end: 20170205
  12. FENTANYL. [Concomitant]
     Active Substance: FENTANYL
     Route: 042
     Dates: start: 20170207, end: 20170208
  13. CLONIDINE. [Concomitant]
     Active Substance: CLONIDINE
     Indication: CHEST PAIN
     Route: 042
     Dates: start: 20170202, end: 20170204
  14. DIAZEPAM. [Concomitant]
     Active Substance: DIAZEPAM
     Route: 042
     Dates: start: 20170207, end: 20170207
  15. METOPROLOL. [Concomitant]
     Active Substance: METOPROLOL
     Route: 048
     Dates: start: 20170204, end: 20170204
  16. HYDRALAZINE [Concomitant]
     Active Substance: HYDRALAZINE HYDROCHLORIDE
     Indication: HYPERTENSION
     Route: 042
     Dates: start: 20170204, end: 20170204
  17. MIDAZOLAM HYDROCHLORIDE. [Concomitant]
     Active Substance: MIDAZOLAM HYDROCHLORIDE
     Indication: AGITATION
     Route: 042
     Dates: start: 20170205, end: 20170207
  18. MAGNESIUM SULPHATE [Concomitant]
     Active Substance: MAGNESIUM SULFATE
     Indication: ELECTROLYTE IMBALANCE
     Dosage: 20 UNIT DOSE REPORTED AS OTHER
     Route: 042
     Dates: start: 20170204, end: 20170204
  19. KETAMINE [Concomitant]
     Active Substance: KETAMINE
     Route: 042
     Dates: start: 20170206, end: 20170206
  20. METARAMINOL TARTRATE [Concomitant]
     Active Substance: METARAMINOL BITARTRATE
     Indication: SEDATION
     Route: 042
     Dates: start: 20170207, end: 20170207
  21. DEXMEDETOMIDINE. [Concomitant]
     Active Substance: DEXMEDETOMIDINE
     Route: 042
     Dates: start: 20170204, end: 20170208
  22. EMICIZUMAB. [Suspect]
     Active Substance: EMICIZUMAB
     Indication: FACTOR VIII DEFICIENCY
     Dosage: 3 MG/KG/WEEK FOR 4 WEEKS WHEN INITIATING TREATMENT, FOLLOWED BY 1.5 MG/KG/WEEK SUBCUTANEOUSLY FOR A
     Route: 058
     Dates: start: 20160608
  23. AMLODIPINE [Concomitant]
     Active Substance: AMLODIPINE BESYLATE
     Indication: CHEST PAIN
     Route: 048
     Dates: start: 20170204, end: 20170204
  24. FENTANYL. [Concomitant]
     Active Substance: FENTANYL
     Indication: SEDATION
     Route: 042
     Dates: start: 20170202, end: 20170207
  25. AMITRIPTYLINE [Concomitant]
     Active Substance: AMITRIPTYLINE
     Indication: PAIN
     Route: 048
     Dates: start: 20170203, end: 20170206
  26. KETAMINE [Concomitant]
     Active Substance: KETAMINE
     Route: 042
     Dates: start: 20170206, end: 20170206
  27. DEXMEDETOMIDINE. [Concomitant]
     Active Substance: DEXMEDETOMIDINE
     Route: 042
     Dates: start: 20170205, end: 20170205
  28. NORADRENALINE [Concomitant]
     Active Substance: NOREPINEPHRINE
     Route: 042
     Dates: start: 20170208, end: 20170208
  29. NORADRENALINE [Concomitant]
     Active Substance: NOREPINEPHRINE
     Route: 042
     Dates: start: 20170208, end: 20170208
  30. NORADRENALINE [Concomitant]
     Active Substance: NOREPINEPHRINE
     Route: 042
     Dates: start: 20170207, end: 20170208
  31. MORPHINE [Concomitant]
     Active Substance: MORPHINE
     Route: 042
     Dates: start: 20170208, end: 20170208
  32. FENTANYL. [Concomitant]
     Active Substance: FENTANYL
     Indication: PAIN
     Route: 042
     Dates: start: 20170202, end: 20170202
  33. OXYCODONE [Concomitant]
     Active Substance: OXYCODONE
     Indication: PAIN
     Route: 048
     Dates: start: 20170202, end: 20170207
  34. DIAZEPAM. [Concomitant]
     Active Substance: DIAZEPAM
     Route: 048
     Dates: start: 20170204, end: 20170206
  35. QUETIAPINE. [Concomitant]
     Active Substance: QUETIAPINE
     Indication: RESTLESSNESS
     Route: 048
     Dates: start: 20170207, end: 20170207
  36. IRON POLYMALTOSE [Concomitant]
     Active Substance: IRON POLYMALTOSE
     Indication: ANAEMIA
     Route: 042
     Dates: start: 20170203, end: 20170203
  37. ROCURONIUM [Concomitant]
     Active Substance: ROCURONIUM BROMIDE
     Indication: SEDATION
     Route: 042
     Dates: start: 20170207, end: 20170207
  38. SODIUM BICARBONATE. [Concomitant]
     Active Substance: SODIUM BICARBONATE
     Indication: ELECTROLYTE IMBALANCE
     Dosage: 25 UNIT DOSE OTHER?121.25 UNIT DOSE OTHER
     Route: 042
     Dates: start: 20170204, end: 20170204
  39. DEXMEDETOMIDINE. [Concomitant]
     Active Substance: DEXMEDETOMIDINE
     Route: 042
     Dates: start: 20170204, end: 20170205
  40. NORADRENALINE [Concomitant]
     Active Substance: NOREPINEPHRINE
     Route: 042
     Dates: start: 20170208, end: 20170208
  41. METHADONE [Concomitant]
     Active Substance: METHADONE HYDROCHLORIDE
     Indication: PAIN
     Route: 048
     Dates: start: 2005
  42. AMLODIPINE [Concomitant]
     Active Substance: AMLODIPINE BESYLATE
     Indication: HYPERTENSION
     Route: 048
     Dates: start: 20160901
  43. CELEBREX [Concomitant]
     Active Substance: CELECOXIB
     Indication: HAEMOPHILIC ARTHROPATHY
     Route: 048
     Dates: start: 20160803
  44. POTASSIUM CHLORIDE SLOW RELEASE [Concomitant]
     Indication: ELECTROLYTE IMBALANCE
     Route: 048
     Dates: start: 20170204, end: 20170205
  45. DIAZEPAM. [Concomitant]
     Active Substance: DIAZEPAM
     Route: 042
     Dates: start: 20170207, end: 20170207
  46. DEXMEDETOMIDINE. [Concomitant]
     Active Substance: DEXMEDETOMIDINE
     Route: 042
     Dates: start: 20170204, end: 20170208
  47. NORADRENALINE [Concomitant]
     Active Substance: NOREPINEPHRINE
     Indication: HYPERTENSION
     Route: 042
     Dates: start: 20170208, end: 20170208
  48. PERINDOPRIL ARGININE [Concomitant]
     Active Substance: PERINDOPRIL ARGININE
     Indication: HYPERTENSION
     Route: 048
     Dates: start: 20160901
  49. AMLODIPINE [Concomitant]
     Active Substance: AMLODIPINE BESYLATE
     Route: 048
     Dates: start: 20170204, end: 20170206
  50. GLYCERYL TRINITRATE [Concomitant]
     Active Substance: NITROGLYCERIN
     Indication: CHEST PAIN
     Route: 062
     Dates: start: 20170204, end: 20170204
  51. FOLIC ACID. [Concomitant]
     Active Substance: FOLIC ACID
     Indication: ANAEMIA
     Route: 048
     Dates: start: 20170204, end: 20170207
  52. THIAMINE. [Concomitant]
     Active Substance: THIAMINE
     Indication: ELECTROLYTE IMBALANCE
     Route: 048
     Dates: start: 20170204, end: 20170207
  53. PRAZOSIN. [Concomitant]
     Active Substance: PRAZOSIN
     Indication: HYPERTENSION
     Route: 048
     Dates: start: 20170204, end: 20170204
  54. METOPROLOL. [Concomitant]
     Active Substance: METOPROLOL
     Indication: HYPERTENSION
     Route: 048
     Dates: start: 20170204, end: 20170204
  55. OLANZAPINE. [Concomitant]
     Active Substance: OLANZAPINE
     Indication: RESTLESSNESS
     Route: 048
     Dates: start: 20170204, end: 20170207
  56. FRUSEMIDE [Concomitant]
     Active Substance: FUROSEMIDE
     Indication: RENAL FAILURE
     Route: 042
     Dates: start: 20170208, end: 20170208
  57. CALCIUM GLUCONATE. [Concomitant]
     Active Substance: CALCIUM GLUCONATE
     Indication: ELECTROLYTE IMBALANCE
     Route: 042
     Dates: start: 20170207, end: 20170207
  58. KETAMINE [Concomitant]
     Active Substance: KETAMINE
     Route: 042
     Dates: start: 20170204, end: 20170205
  59. NORADRENALINE [Concomitant]
     Active Substance: NOREPINEPHRINE
     Route: 042
     Dates: start: 20170208, end: 20170208
  60. NORADRENALINE [Concomitant]
     Active Substance: NOREPINEPHRINE
     Route: 042
     Dates: start: 20170208, end: 20170208
  61. NORADRENALINE [Concomitant]
     Active Substance: NOREPINEPHRINE
     Route: 042
     Dates: start: 20170207, end: 20170208
  62. VASOPRESSIN. [Concomitant]
     Active Substance: VASOPRESSIN
     Indication: HYPERTENSION
     Route: 042
     Dates: start: 20170208, end: 20170208
  63. ENDEP [Concomitant]
     Active Substance: AMITRIPTYLINE HYDROCHLORIDE
     Indication: PAIN
     Route: 048
  64. DIAZEPAM. [Concomitant]
     Active Substance: DIAZEPAM
     Indication: AGITATION
     Route: 048
     Dates: start: 20170204, end: 20170204
  65. PARACETAMOL [Concomitant]
     Active Substance: ACETAMINOPHEN
     Indication: PAIN
     Route: 042
     Dates: start: 20170203, end: 20170205
  66. HYDRALAZINE [Concomitant]
     Active Substance: HYDRALAZINE HYDROCHLORIDE
     Route: 042
     Dates: start: 20170204, end: 20170204
  67. KETAMINE [Concomitant]
     Active Substance: KETAMINE
     Route: 042
     Dates: start: 20170206, end: 20170206
  68. ACETYLCYSTEINE. [Concomitant]
     Active Substance: ACETYLCYSTEINE
     Indication: RENAL FAILURE
     Route: 048
     Dates: start: 20170207, end: 20170207
  69. DEXMEDETOMIDINE. [Concomitant]
     Active Substance: DEXMEDETOMIDINE
     Indication: PAIN
     Route: 042
     Dates: start: 20170204, end: 20170205
  70. DEXMEDETOMIDINE. [Concomitant]
     Active Substance: DEXMEDETOMIDINE
     Route: 042
     Dates: start: 20170204, end: 20170204
  71. PROPOFOL. [Concomitant]
     Active Substance: PROPOFOL
     Indication: SEDATION
     Route: 042
     Dates: start: 20170207, end: 20170208

REACTIONS (2)
  - Rectal haemorrhage [Fatal]
  - Thrombotic microangiopathy [Recovering/Resolving]

NARRATIVE: CASE EVENT DATE: 20170131
